FAERS Safety Report 5357846-5 (Version None)
Quarter: 2007Q2

REPORT INFORMATION
  Report Type: 
  Country: None (occurrence: None)
  Receive Date: 20070614
  Receipt Date: 20070608
  Transmission Date: 20071010
  Serious: Yes (Other)
  Sender: FDA-Public Use
  Company Number: GB-GENENTECH-242837

PATIENT
  Age: 35 Year
  Sex: Male

DRUGS (1)
  1. EFALIZUMAB [Suspect]
     Indication: PSORIASIS

REACTIONS (3)
  - ARTHRITIS [None]
  - HEPATITIS [None]
  - PSORIASIS [None]
